FAERS Safety Report 7343878-4 (Version None)
Quarter: 2011Q1

REPORT INFORMATION
  Report Type: 
  Country: None (occurrence: None)
  Receive Date: 20110310
  Receipt Date: 20110304
  Transmission Date: 20110831
  Serious: Yes (Hospitalization)
  Sender: FDA-Public Use
  Company Number: HU-ROCHE-763751

PATIENT
  Sex: Female
  Weight: 50 kg

DRUGS (3)
  1. AVASTIN [Suspect]
     Dosage: DOSE: 7.5 MG/TTKG
     Route: 042
     Dates: start: 20100930, end: 20101218
  2. TAXANES [Concomitant]
     Dates: start: 20100930, end: 20101218
  3. CARBOPLATIN [Concomitant]
     Dates: start: 20100930, end: 20101218

REACTIONS (1)
  - METRORRHAGIA [None]
